FAERS Safety Report 9204768 (Version 1)
Quarter: 2013Q2

REPORT INFORMATION
  Report Type: Spontaneous
  Country: US (occurrence: US)
  Receive Date: 20130402
  Receipt Date: 20130402
  Transmission Date: 20140414
  Serious: Yes (Hospitalization, Other)
  Sender: FDA-Public Use
  Company Number: US-PFIZER INC-2013100239

PATIENT
  Age: 92 Year
  Sex: Female

DRUGS (1)
  1. BOSULIF [Suspect]
     Indication: CHRONIC MYELOID LEUKAEMIA
     Dosage: 500 MG, 1X/DAY
     Route: 048
     Dates: start: 20130218, end: 20130310

REACTIONS (6)
  - Pancytopenia [Unknown]
  - Subdural haematoma [Unknown]
  - Diarrhoea [Unknown]
  - Dyspnoea [Unknown]
  - Confusional state [Unknown]
  - Gastrooesophageal reflux disease [Unknown]
